FAERS Safety Report 10609890 (Version 6)
Quarter: 2015Q3

REPORT INFORMATION
  Report Type: Report from Study
  Country: KR (occurrence: KR)
  Receive Date: 20141126
  Receipt Date: 20150814
  Transmission Date: 20151125
  Serious: Yes (Hospitalization)
  Sender: FDA-Public Use
  Company Number: KR-PFIZER INC-2014272072

PATIENT
  Age: 58 Year
  Sex: Female
  Weight: 55 kg

DRUGS (1)
  1. CRIZOTINIB [Suspect]
     Active Substance: CRIZOTINIB
     Indication: NON-SMALL CELL LUNG CANCER
     Dosage: 250 MG, 2X/DAY
     Route: 048
     Dates: start: 20121004, end: 20141007

REACTIONS (1)
  - Gastrointestinal amyloidosis [Recovered/Resolved]

NARRATIVE: CASE EVENT DATE: 20140924
